FAERS Safety Report 6910287-9 (Version None)
Quarter: 2010Q3

REPORT INFORMATION
  Report Type: 
  Country: None (occurrence: None)
  Receive Date: 20100806
  Receipt Date: 20100723
  Transmission Date: 20110219
  Serious: Yes (Hospitalization)
  Sender: FDA-Public Use
  Company Number: GB-RANBAXY-2010RR-36668

PATIENT
  Age: 47 Year
  Sex: Female

DRUGS (3)
  1. AMPICILLIN SODIUM/SULBACTAM SODIUM [Suspect]
     Indication: LOWER RESPIRATORY TRACT INFECTION
     Dosage: 1 DF, TID
     Route: 048
     Dates: start: 20100623, end: 20100630
  2. BECLOMETHASONE DIPROPIONATE [Concomitant]
     Dosage: 2 DF, BID
     Route: 055
  3. ALBUTEROL [Concomitant]
     Dosage: 2 DF, PRN
     Route: 055

REACTIONS (1)
  - JAUNDICE CHOLESTATIC [None]
